FAERS Safety Report 5584268-4 (Version None)
Quarter: 2008Q1

REPORT INFORMATION
  Report Type: 
  Country: None (occurrence: None)
  Receive Date: 20080108
  Receipt Date: 20080104
  Transmission Date: 20080703
  Serious: Yes (Hospitalization)
  Sender: FDA-Public Use
  Company Number: B0486022A

PATIENT
  Age: 11 Year
  Sex: Male

DRUGS (1)
  1. CLAMOXYL [Suspect]
     Indication: ALLERGY TEST
     Route: 048
     Dates: start: 20050601

REACTIONS (5)
  - DERMATITIS EXFOLIATIVE [None]
  - ERYTHEMA [None]
  - LOCALISED OEDEMA [None]
  - RASH PRURITIC [None]
  - SKIN EXFOLIATION [None]
